FAERS Safety Report 10043569 (Version 1)
Quarter: 2014Q1

REPORT INFORMATION
  Report Type: Spontaneous
  Country: US (occurrence: None)
  Receive Date: 20140327
  Receipt Date: 20140327
  Transmission Date: 20141002
  Serious: Yes (Hospitalization)
  Sender: FDA-Public Use
  Company Number: None

PATIENT
  Age: 68 Year
  Sex: Male
  Weight: 95.5 kg

DRUGS (2)
  1. ENOXAPARIN [Suspect]
     Indication: DEEP VEIN THROMBOSIS
     Route: 058
     Dates: start: 20140115, end: 20140125
  2. ENOXAPARIN [Suspect]
     Indication: PORTAL VEIN THROMBOSIS
     Route: 058
     Dates: start: 20140115, end: 20140125

REACTIONS (5)
  - Hypotension [None]
  - Tachycardia [None]
  - Retroperitoneal haemorrhage [None]
  - Anaemia [None]
  - Haemorrhage [None]
